FAERS Safety Report 11072345 (Version 2)
Quarter: 2015Q2

REPORT INFORMATION
  Report Type: Report from Study
  Country: CN (occurrence: CN)
  Receive Date: 20150428
  Receipt Date: 20150527
  Transmission Date: 20150821
  Serious: Yes (Death, Hospitalization)
  Sender: FDA-Public Use
  Company Number: PHHY2015CN050336

PATIENT
  Sex: Female

DRUGS (1)
  1. GLIVEC [Suspect]
     Active Substance: IMATINIB MESYLATE
     Indication: CHRONIC MYELOID LEUKAEMIA
     Dosage: 400 MG, QD (ONCE DAILY)
     Route: 048
     Dates: start: 20140627

REACTIONS (4)
  - Alpha haemolytic streptococcal infection [Unknown]
  - Lung infection [Fatal]
  - Chronic myeloid leukaemia transformation [Fatal]
  - Sepsis [Fatal]
